FAERS Safety Report 10183191 (Version 1)
Quarter: 2014Q2

REPORT INFORMATION
  Report Type: Spontaneous
  Country: US (occurrence: US)
  Receive Date: 20140520
  Receipt Date: 20140520
  Transmission Date: 20141212
  Serious: No
  Sender: FDA-Public Use
  Company Number: US-009507513-1405USA000042

PATIENT
  Age: 80 Year
  Sex: Male

DRUGS (1)
  1. CLARITIN [Suspect]
     Dosage: UNK
     Route: 048
     Dates: start: 20140418

REACTIONS (2)
  - Lip swelling [Unknown]
  - Hypersensitivity [Unknown]
